FAERS Safety Report 23988121 (Version 1)
Quarter: 2024Q2

REPORT INFORMATION
  Report Type: Spontaneous
  Country: CH (occurrence: CH)
  Receive Date: 20240619
  Receipt Date: 20240619
  Transmission Date: 20240715
  Serious: Yes (Other)
  Sender: FDA-Public Use
  Company Number: CH-AMGEN-CHESP2024116899

PATIENT
  Age: 11 Year
  Sex: Female

DRUGS (26)
  1. ROMIPLOSTIM [Suspect]
     Active Substance: ROMIPLOSTIM
     Indication: Cytopenia
     Dosage: UNK
     Route: 065
  2. ELTROMBOPAG [Suspect]
     Active Substance: ELTROMBOPAG
     Indication: Cytopenia
     Dosage: UNK
     Route: 065
  3. RITUXIMAB [Suspect]
     Active Substance: RITUXIMAB
     Indication: Cytopenia
     Dosage: UNK
     Route: 065
  4. DARATUMUMAB [Suspect]
     Active Substance: DARATUMUMAB
     Indication: Cytopenia
     Dosage: UNK
     Route: 065
  5. BORTEZOMIB [Suspect]
     Active Substance: BORTEZOMIB
     Indication: Cytopenia
     Dosage: UNK
     Route: 065
  6. VINCRISTINE [Suspect]
     Active Substance: VINCRISTINE
     Indication: Cytopenia
     Dosage: UNK
     Route: 065
  7. BUSULFAN [Concomitant]
     Active Substance: BUSULFAN
     Indication: Allogenic stem cell transplantation
     Dosage: 17.6 MILLIGRAM/KILOGRAM
     Route: 042
  8. AMPHOTERICIN B [Concomitant]
     Active Substance: AMPHOTERICIN B
     Indication: Prophylaxis
     Dosage: 60 MILLIGRAM/KILOGRAM, QD (BODY WEIGHT)
     Route: 065
  9. GENTAMICIN [Concomitant]
     Active Substance: GENTAMICIN
     Indication: Prophylaxis
     Dosage: 15 MILLIGRAM/KILOGRAM, QD (BODYWEIGHT)
     Route: 048
  10. VANCOMYCIN [Concomitant]
     Active Substance: VANCOMYCIN
     Indication: Prophylaxis
     Dosage: 60 MILLIGRAM/KILOGRAM, QD (BODYWEIGHT)
     Route: 048
  11. COLISTIN [Concomitant]
     Active Substance: COLISTIN
     Indication: Prophylaxis
     Dosage: UNK (0.15 MIO U/KG BODYWEIGHT/DAY)
     Route: 048
  12. FLUDARABINE [Concomitant]
     Active Substance: FLUDARABINE PHOSPHATE
     Indication: Allogenic stem cell transplantation
     Dosage: 30 MILLIGRAM/SQ. METER
     Route: 042
  13. ACETYLCYSTEINE [Concomitant]
     Active Substance: ACETYLCYSTEINE
     Indication: Prophylaxis
     Dosage: 100 MILLIGRAM/KILOGRAM
     Route: 042
  14. THYMOGLOBULIN [Concomitant]
     Active Substance: LAPINE T-LYMPHOCYTE IMMUNE GLOBULIN
     Dosage: 2.5 MILLIGRAM/KILOGRAM, QD (BODY WEIGHT)
     Route: 065
  15. CLONAZEPAM [Concomitant]
     Active Substance: CLONAZEPAM
     Indication: Seizure prophylaxis
     Dosage: UNK
     Route: 042
  16. ACYCLOVIR [Concomitant]
     Active Substance: ACYCLOVIR
     Dosage: UNK (1000-1500 MG/M^2)
     Route: 042
  17. VALACYCLOVIR HYDROCHLORIDE [Concomitant]
     Active Substance: VALACYCLOVIR HYDROCHLORIDE
     Indication: Antibiotic prophylaxis
     Dosage: UNK
     Route: 065
  18. VALACYCLOVIR HYDROCHLORIDE [Concomitant]
     Active Substance: VALACYCLOVIR HYDROCHLORIDE
     Indication: Antiviral prophylaxis
  19. ITRACONAZOLE [Concomitant]
     Active Substance: ITRACONAZOLE
     Indication: Antibiotic prophylaxis
  20. ITRACONAZOLE [Concomitant]
     Active Substance: ITRACONAZOLE
     Indication: Antiviral prophylaxis
  21. SULFAMETHOXAZOLE AND TRIMETHOPRIM [Concomitant]
     Active Substance: SULFAMETHOXAZOLE\TRIMETHOPRIM
     Indication: Antibiotic prophylaxis
     Dosage: UNK
     Route: 065
  22. TACROLIMUS [Concomitant]
     Active Substance: TACROLIMUS
     Indication: Prophylaxis against graft versus host disease
     Dosage: UNK (8-12)
     Route: 065
  23. CYCLOSPORINE [Concomitant]
     Active Substance: CYCLOSPORINE
     Indication: Prophylaxis against graft versus host disease
     Dosage: UNK (150-250)
     Route: 065
  24. MYCOPHENOLATE MOFETIL [Concomitant]
     Active Substance: MYCOPHENOLATE MOFETIL
     Indication: Prophylaxis against graft versus host disease
     Dosage: 1200 MILLIGRAM/SQ. METER
     Route: 042
  25. GANCICLOVIR [Concomitant]
     Active Substance: GANCICLOVIR
     Indication: BK virus infection
     Dosage: UNK
     Route: 065
  26. GANCICLOVIR [Concomitant]
     Active Substance: GANCICLOVIR
     Indication: Human herpesvirus 6 infection

REACTIONS (3)
  - Transplant failure [Recovered/Resolved]
  - Off label use [Unknown]
  - Therapy partial responder [Unknown]
